FAERS Safety Report 5683916-8 (Version None)
Quarter: 2008Q1

REPORT INFORMATION
  Report Type: 
  Country: None (occurrence: None)
  Receive Date: 20080328
  Receipt Date: 20080317
  Transmission Date: 20080703
  Serious: Yes (Hospitalization, Other)
  Sender: FDA-Public Use
  Company Number: PHEH2006US07761

PATIENT
  Age: 69 Year
  Sex: Female
  Weight: 76.643 kg

DRUGS (15)
  1. ZOMETA [Suspect]
     Indication: BONE DISORDER
     Dosage: 4 MG, UNK
     Route: 042
     Dates: start: 20020901
  2. AREDIA [Suspect]
     Indication: COLON CANCER METASTATIC
     Dates: start: 19990101
  3. FLUOROURACIL [Concomitant]
     Indication: COLON CANCER METASTATIC
     Dosage: 500 MG, UNK
     Route: 042
     Dates: start: 19990101
  4. FLUOROURACIL [Concomitant]
     Dosage: UNK, NO TREATMENT
  5. FLUOROURACIL [Concomitant]
     Dates: start: 20040426
  6. LEUCOVORIN CALCIUM [Concomitant]
     Indication: COLON CANCER METASTATIC
     Dosage: 900 MG, UNK
     Route: 042
     Dates: start: 19990101
  7. LEUCOVORIN CALCIUM [Concomitant]
     Dosage: UNK, NO TREATMENT
  8. LEUCOVORIN CALCIUM [Concomitant]
     Dates: start: 20040426
  9. CPT-11 [Concomitant]
     Indication: COLON CANCER METASTATIC
     Dates: start: 19990101
  10. TEQUIN [Concomitant]
     Indication: PROPHYLAXIS
     Dates: start: 20011001
  11. FOLFOX-4 [Concomitant]
     Dosage: UNK, UNK
     Dates: start: 20040412
  12. AVASTIN [Concomitant]
     Indication: COLON CANCER METASTATIC
     Dosage: 390 MG, UNK
     Route: 042
     Dates: start: 20040426
  13. AVASTIN [Concomitant]
     Dosage: UNK, NO TREATMENT
  14. EPOETIN NOS [Concomitant]
     Dosage: 40000 IU, UNK
  15. DAROB [Concomitant]
     Dosage: 200 UG, EVERY OTHER WEEK
     Route: 058
     Dates: start: 20041209

REACTIONS (29)
  - ASTHENIA [None]
  - BREAST CALCIFICATIONS [None]
  - CEREBROVASCULAR ACCIDENT [None]
  - CHRONIC OBSTRUCTIVE PULMONARY DISEASE [None]
  - COLON CANCER RECURRENT [None]
  - DEHYDRATION [None]
  - EDENTULOUS [None]
  - EMPHYSEMA [None]
  - FIBROADENOMA OF BREAST [None]
  - HEPATIC LESION [None]
  - HEPATIC MASS [None]
  - MAMMOGRAM ABNORMAL [None]
  - METASTASES TO LIVER [None]
  - METASTASES TO LYMPH NODES [None]
  - NAUSEA [None]
  - NECROSIS [None]
  - OEDEMA [None]
  - OSTEOCHONDROSIS [None]
  - OSTEONECROSIS [None]
  - OSTEOPENIA [None]
  - PAIN [None]
  - PANCYTOPENIA [None]
  - PNEUMONIA [None]
  - POSITRON EMISSION TOMOGRAM ABNORMAL [None]
  - RENAL FAILURE ACUTE [None]
  - RESTLESS LEGS SYNDROME [None]
  - URINARY RETENTION [None]
  - VOMITING [None]
  - WEIGHT DECREASED [None]
